FAERS Safety Report 20639403 (Version 1)
Quarter: 2022Q1

REPORT INFORMATION
  Report Type: Spontaneous
  Country: IN (occurrence: IN)
  Receive Date: 20220326
  Receipt Date: 20220326
  Transmission Date: 20220424
  Serious: Yes (Other)
  Sender: FDA-Public Use
  Company Number: IN-Shilpa Medicare Limited-SML-IN-2022-00264

PATIENT
  Age: 52 Year
  Sex: Female

DRUGS (5)
  1. CAPECITABINE [Suspect]
     Active Substance: CAPECITABINE
     Indication: Rectal adenocarcinoma
     Dosage: IN TWO DIVIDED DOSES
  2. CAPECITABINE [Suspect]
     Active Substance: CAPECITABINE
     Dosage: IN TWO DIVIDED DOSES FOR 14 DAYS OF A 21 DAY CYCLE.
  3. OXALIPLATIN [Suspect]
     Active Substance: OXALIPLATIN
     Indication: Rectal adenocarcinoma
     Dosage: CYCLE 1 FOR 3 HOURS INFUSION DURATION
  4. OXALIPLATIN [Suspect]
     Active Substance: OXALIPLATIN
     Dosage: CYCLE 2, 3 FOR 6 HOURS INFUSION DURATION
  5. OXALIPLATIN [Suspect]
     Active Substance: OXALIPLATIN
     Dosage: CYCLE 4, 5, 6 FOR 6 HOURS INFUSION DURATION

REACTIONS (7)
  - Dysaesthesia pharynx [Recovered/Resolved]
  - Dysarthria [Recovered/Resolved]
  - Chemical burns of eye [Unknown]
  - Dizziness [Unknown]
  - Headache [Unknown]
  - Nausea [Unknown]
  - Paraesthesia [Unknown]
